FAERS Safety Report 6864112-5 (Version None)
Quarter: 2010Q3

REPORT INFORMATION
  Report Type: 
  Country: None (occurrence: None)
  Receive Date: 20100721
  Receipt Date: 20081113
  Transmission Date: 20110219
  Serious: No
  Sender: FDA-Public Use
  Company Number: US-PFIZER INC-2008023243

PATIENT
  Sex: Female
  Weight: 51.7 kg

DRUGS (3)
  1. CHANTIX [Suspect]
     Indication: SMOKING CESSATION THERAPY
     Route: 048
     Dates: start: 20080228, end: 20080316
  2. XANAX [Suspect]
     Indication: ANXIETY
     Route: 048
     Dates: start: 20080131
  3. PAXIL [Concomitant]
     Dates: start: 20080306

REACTIONS (9)
  - ASTHENIA [None]
  - CRYING [None]
  - DECREASED APPETITE [None]
  - DEPRESSION [None]
  - DISTURBANCE IN ATTENTION [None]
  - FATIGUE [None]
  - FEELING ABNORMAL [None]
  - LAZINESS [None]
  - PALPITATIONS [None]
